FAERS Safety Report 4316175-9 (Version None)
Quarter: 2004Q1

REPORT INFORMATION
  Report Type: 
  Country: None (occurrence: None)
  Receive Date: 20040311
  Receipt Date: 20040311
  Transmission Date: 20041129
  Serious: Yes (Hospitalization, Disabling, Other)
  Sender: FDA-Public Use
  Company Number: None

PATIENT
  Age: 12 Year
  Sex: Female
  Weight: 48.0813 kg

DRUGS (2)
  1. INDERAL [Suspect]
     Indication: DEPRESSION
     Dosage: 2 TABLET ONCE A DAY ORAL
     Route: 048
     Dates: start: 20020410, end: 20040310
  2. AMITRIPTYLINE HCL [Suspect]
     Dosage: ONCE A DAY ORAL
     Route: 048

REACTIONS (3)
  - BLINDNESS [None]
  - CSF PRESSURE INCREASED [None]
  - HEADACHE [None]
